FAERS Safety Report 11426647 (Version 1)
Quarter: 2015Q3

REPORT INFORMATION
  Report Type: Spontaneous
  Country: US (occurrence: US)
  Receive Date: 20150821
  Receipt Date: 20150821
  Transmission Date: 20151125
  Serious: No
  Sender: FDA-Public Use
  Company Number: US-ELI_LILLY_AND_COMPANY-US201306006876

PATIENT
  Age: 71 Year
  Sex: Male

DRUGS (5)
  1. HUMULIN R [Suspect]
     Active Substance: INSULIN HUMAN
     Indication: INSULIN RESISTANT DIABETES
     Dosage: 82 U, TID
     Route: 065
  2. HUMULIN R [Suspect]
     Active Substance: INSULIN HUMAN
     Dosage: 64 U, WITH HIS LATE MEAL
     Route: 065
  3. HUMULIN R [Suspect]
     Active Substance: INSULIN HUMAN
     Dosage: 64 U, WITH HIS LATE MEAL
     Route: 065
  4. LANTUS [Concomitant]
     Active Substance: INSULIN GLARGINE
     Dosage: 60 U, UNKNOWN
     Route: 065
  5. HUMULIN N [Concomitant]
     Active Substance: INSULIN HUMAN
     Dosage: 60 U, UNKNOWN
     Route: 065

REACTIONS (4)
  - Blood glucose increased [Not Recovered/Not Resolved]
  - Muscular weakness [Unknown]
  - Drug ineffective [Unknown]
  - Hypophagia [Unknown]

NARRATIVE: CASE EVENT DATE: 201305
